FAERS Safety Report 8927034 (Version 1)
Quarter: 2012Q4

REPORT INFORMATION
  Report Type: 
  Country: JP (occurrence: JP)
  Receive Date: 20121127
  Receipt Date: 20121127
  Transmission Date: 20130627
  Serious: Yes (Hospitalization)
  Sender: FDA-Public Use
  Company Number: JP-009507513-1207JPN001439

PATIENT
  Age: 49 Year
  Sex: Female
  Weight: 47 kg

DRUGS (6)
  1. PEGINTRON [Suspect]
     Indication: HEPATITIS C
     Dosage: 1.5 Microgram, qw
     Route: 058
     Dates: start: 20120609
  2. REBETOL [Suspect]
     Indication: HEPATITIS C
     Dosage: 600 mg, qd
     Route: 048
     Dates: start: 20120609, end: 20120617
  3. REBETOL [Suspect]
     Dosage: 200 mg, qd
     Dates: start: 20120618, end: 20120628
  4. REBETOL [Suspect]
     Dosage: 400 mg, qd
     Route: 048
     Dates: start: 20120629
  5. TELAPREVIR [Suspect]
     Indication: HEPATITIS C
     Dosage: 1500 mg, qd
     Route: 048
     Dates: start: 20120609
  6. DERMOVATE [Concomitant]
     Dosage: EXT
     Route: 061
     Dates: start: 20120614

REACTIONS (1)
  - Drug eruption [Recovered/Resolved]
